FAERS Safety Report 8899300 (Version 1)
Quarter: 2012Q4

REPORT INFORMATION
  Report Type: 
  Country: GB (occurrence: GB)
  Receive Date: 20121109
  Receipt Date: 20121109
  Transmission Date: 20130627
  Serious: Yes (Other)
  Sender: FDA-Public Use
  Company Number: GB-B.I. PHARMACEUTICALS,INC./RIDGEFIELD-2012-UK-01677UK

PATIENT
  Sex: Female

DRUGS (1)
  1. PERSANTIN RETARD 150 [Suspect]

REACTIONS (8)
  - Transient ischaemic attack [Unknown]
  - Blindness [Unknown]
  - Headache [Recovered/Resolved]
  - Vomiting [Recovered/Resolved]
  - Hypertension [Unknown]
  - Heart rate increased [Unknown]
  - Eye pain [Unknown]
  - Head discomfort [Unknown]
